FAERS Safety Report 8976771 (Version 2)
Quarter: 2013Q1

REPORT INFORMATION
  Report Type: Report from Study
  Country: US (occurrence: US)
  Receive Date: 20121220
  Receipt Date: 20130108
  Transmission Date: 20140127
  Serious: Yes (Hospitalization)
  Sender: FDA-Public Use
  Company Number: US-VERTEX PHARMACEUTICALS INC.-2012-026374

PATIENT
  Sex: Male

DRUGS (19)
  1. VX-950 (TELAPREVIR) [Suspect]
     Indication: HEPATITIS C
     Dosage: 750 MG, TID
     Route: 048
     Dates: start: 20121105, end: 20121204
  2. VX-950 (TELAPREVIR) [Suspect]
     Dosage: 750 MG, TID
     Route: 048
  3. RIBASPHERE [Suspect]
     Indication: HEPATITIS C
     Dosage: 1000 MG, QD
     Dates: end: 20121204
  4. RIBASPHERE [Suspect]
     Dosage: 1000 MG, QD
  5. ASPIRIN [Concomitant]
     Dosage: 81 MG, QD
     Route: 048
  6. CARVEDILOL [Concomitant]
     Dosage: 25 MG, BID
     Route: 048
  7. ISOSORBIDE MN [Concomitant]
     Dosage: 60 MG, QD
     Route: 048
  8. LOSARTAN + HIDROCLOROTIAZIDA [Concomitant]
     Dosage: 100/25 MGUNK
     Route: 048
  9. LISINOPRIL [Concomitant]
     Dosage: 40 MG, QD
     Route: 048
  10. CLONIDINE HCL [Concomitant]
     Dosage: 0.3 MG, TID
     Route: 048
  11. HYDRALAZINE [Concomitant]
     Dosage: 25 MG, TID
     Route: 048
  12. CRESTOR [Concomitant]
     Dosage: 20 MG, QD
     Route: 048
  13. LANSOPRAZOLE [Concomitant]
     Dosage: 30 MG, QD
     Route: 048
  14. FERROUS SULFATE [Concomitant]
     Dosage: 325 MG, QD
     Route: 048
  15. JANUMET [Concomitant]
     Dosage: 1000 MG, BID
     Route: 048
  16. LEVEMIR [Concomitant]
     Dosage: 56 UNK, BID
     Route: 058
  17. APIDRA [Concomitant]
     Dosage: 72 UNITS
     Route: 058
     Dates: end: 20121207
  18. POLYTHYLENE GLYCOL [Concomitant]
     Dosage: 17 G, PRN
  19. DUCOSATE SODIUM [Concomitant]
     Dosage: 250 MG, PRN

REACTIONS (5)
  - Anaemia [Recovered/Resolved]
  - Fatigue [Recovered/Resolved]
  - Malaise [None]
  - Myalgia [None]
  - Dyspnoea exertional [None]
